FAERS Safety Report 20486503 (Version 1)
Quarter: 2022Q1

REPORT INFORMATION
  Report Type: Spontaneous
  Country: JP (occurrence: JP)
  Receive Date: 20220217
  Receipt Date: 20220217
  Transmission Date: 20220424
  Serious: Yes (Other)
  Sender: FDA-Public Use
  Company Number: JP-KYOWAKIRIN-2021AKK015903

PATIENT

DRUGS (12)
  1. POTELIGEO [Suspect]
     Active Substance: MOGAMULIZUMAB-KPKC
     Indication: Adult T-cell lymphoma/leukaemia
     Dosage: 63 MG
     Route: 041
     Dates: start: 20210804, end: 20210804
  2. REVLIMID [Suspect]
     Active Substance: LENALIDOMIDE
     Indication: Adult T-cell lymphoma/leukaemia
     Dosage: 25 MG, QD, BEFORE BEDTIME
     Route: 048
     Dates: start: 20210831, end: 20210906
  3. REVLIMID [Suspect]
     Active Substance: LENALIDOMIDE
     Dosage: UNK
     Route: 048
     Dates: start: 20210818, end: 20210830
  4. SULFAMETHOXAZOLE\TRIMETHOPRIM [Suspect]
     Active Substance: SULFAMETHOXAZOLE\TRIMETHOPRIM
     Dosage: 0.5 DF, QD, AFTER BREAKFAST
     Route: 048
     Dates: start: 20210831, end: 20210906
  5. THEOPHYLLINE [Concomitant]
     Active Substance: THEOPHYLLINE
     Dosage: 200 MG, QD, BEFORE BEDTIME
     Route: 048
     Dates: start: 20210831, end: 20210906
  6. SINGULAIR [Concomitant]
     Active Substance: MONTELUKAST SODIUM
     Dosage: 10 MG, QD, BEFORE BEDTIME
     Route: 048
     Dates: start: 20210831, end: 20210906
  7. DECADRON [Concomitant]
     Active Substance: DEXAMETHASONE
     Dosage: 0.5 MG, QD, AFTER BREAKFAST
     Route: 048
     Dates: start: 20210831, end: 20210906
  8. NEXIUM [Concomitant]
     Active Substance: ESOMEPRAZOLE MAGNESIUM
     Dosage: 20 MG, QD, AFTER BREAKFAST
     Route: 048
     Dates: start: 20210831, end: 20210906
  9. CLARITHROMYCIN [Concomitant]
     Active Substance: CLARITHROMYCIN
     Dosage: 200 MG, BID, AFTER BREAKFAST AND DINNER
     Route: 048
     Dates: start: 20210831, end: 20210906
  10. BROTIZOLAM [Concomitant]
     Active Substance: BROTIZOLAM
     Dosage: 0.25 MG, QD, BEFORE BEDTIME
     Route: 048
     Dates: start: 20210831, end: 20210906
  11. ROZEREM [Concomitant]
     Active Substance: RAMELTEON
     Dosage: 8 MG, QD, BEFORE BEDTIME
     Route: 048
     Dates: start: 20210831, end: 20210906
  12. ASPIRIN [Concomitant]
     Active Substance: ASPIRIN
     Dosage: 100 MG, QD, AFTER BREAKFAST
     Route: 048
     Dates: start: 20210831, end: 20210906

REACTIONS (2)
  - Conjunctival hyperaemia [Recovered/Resolved]
  - Rash [Recovered/Resolved]

NARRATIVE: CASE EVENT DATE: 20210902
